FAERS Safety Report 7374625 (Version 3)
Quarter: 2013Q1

REPORT INFORMATION
  Report Type: Spontaneous
  Country: US (occurrence: US)
  Receive Date: 20100503
  Receipt Date: 20130219
  Transmission Date: 20140127
  Serious: No
  Sender: FDA-Public Use
  Company Number: US-ASTRAZENECA-2009SE28221

PATIENT
  Age: 46 Year
  Sex: Female

DRUGS (1)
  1. NEXIUM [Suspect]
     Indication: GASTRIC ULCER
     Route: 048

REACTIONS (5)
  - Gastric disorder [Unknown]
  - Hypokinesia [Unknown]
  - Joint dislocation [Unknown]
  - Joint injury [Unknown]
  - Drug dose omission [Unknown]
